FAERS Safety Report 14934387 (Version 2)
Quarter: 2018Q2

REPORT INFORMATION
  Report Type: Spontaneous
  Country: CA (occurrence: CA)
  Receive Date: 20180524
  Receipt Date: 20180607
  Transmission Date: 20180711
  Serious: Yes (Other)
  Sender: FDA-Public Use
  Company Number: CA-CELLTRION INC.-2018CA020003

PATIENT

DRUGS (3)
  1. ASACOL [Concomitant]
     Active Substance: MESALAMINE
     Dosage: UNK
  2. INFLECTRA [Suspect]
     Active Substance: INFLIXIMAB-DYYB
     Dosage: 350 MG; INTRAVENOUS
     Route: 042
     Dates: start: 20180530
  3. INFLECTRA [Suspect]
     Active Substance: INFLIXIMAB-DYYB
     Indication: COLITIS ULCERATIVE
     Dosage: 5 MG/KG (350 MG), CYCLIC (EVERY 0, 2, 6 WEEKS THENEVERY 8 WEEKS)
     Route: 042
     Dates: start: 20180516

REACTIONS (4)
  - Blood pressure fluctuation [Unknown]
  - Heart rate irregular [Unknown]
  - Incorrect dosage administered [Unknown]
  - Hypertension [Unknown]

NARRATIVE: CASE EVENT DATE: 20180516
